FAERS Safety Report 11315211 (Version 1)
Quarter: 2015Q3

REPORT INFORMATION
  Report Type: Spontaneous
  Country: FR (occurrence: FR)
  Receive Date: 20150727
  Receipt Date: 20150727
  Transmission Date: 20151125
  Serious: Yes (Hospitalization, Other)
  Sender: FDA-Public Use
  Company Number: FR-GILEAD-2015-0164667

PATIENT
  Age: 60 Year
  Sex: Male

DRUGS (12)
  1. KARDEGIC [Concomitant]
     Active Substance: ASPIRIN LYSINE
  2. ACTISKENAN [Concomitant]
     Active Substance: MORPHINE SULFATE
  3. XANAX [Concomitant]
     Active Substance: ALPRAZOLAM
  4. MACROGOL [Concomitant]
     Active Substance: POLYETHYLENE GLYCOLS
  5. NOCTAMIDE [Concomitant]
     Active Substance: LORMETAZEPAM
  6. VOLTAREN [Concomitant]
     Active Substance: DICLOFENAC SODIUM
  7. ATACAND [Concomitant]
     Active Substance: CANDESARTAN CILEXETIL
  8. NEBIVOLOL. [Concomitant]
     Active Substance: NEBIVOLOL
  9. EVIPLERA [Suspect]
     Active Substance: EMTRICITABINE\RILPIVIRINE\TENOFOVIR DISOPROXIL FUMARATE
     Indication: PRODUCT USED FOR UNKNOWN INDICATION
     Dosage: 1 DF, QD
     Route: 048
     Dates: start: 201212, end: 20150625
  10. EFFEXOR [Concomitant]
     Active Substance: VENLAFAXINE HYDROCHLORIDE
  11. LYRICA [Concomitant]
     Active Substance: PREGABALIN
  12. DUROGESIC [Concomitant]
     Active Substance: FENTANYL

REACTIONS (1)
  - Osteonecrosis [Not Recovered/Not Resolved]

NARRATIVE: CASE EVENT DATE: 201506
